FAERS Safety Report 7188277-3 (Version None)
Quarter: 2010Q4

REPORT INFORMATION
  Report Type: 
  Country: None (occurrence: None)
  Receive Date: 20101222
  Receipt Date: 20100713
  Transmission Date: 20110411
  Serious: No
  Sender: FDA-Public Use
  Company Number: US-AMGEN-KDL424271

PATIENT

DRUGS (2)
  1. ENBREL [Suspect]
     Indication: ANKYLOSING SPONDYLITIS
     Dosage: 50 MG, QWK
     Route: 058
  2. INFLIXIMAB [Concomitant]
     Dosage: 600 MG, Q6WK

REACTIONS (4)
  - ANKYLOSING SPONDYLITIS [None]
  - BLOOD IMMUNOGLOBULIN M INCREASED [None]
  - INFLAMMATORY MARKER INCREASED [None]
  - RED BLOOD CELL SEDIMENTATION RATE ABNORMAL [None]
